FAERS Safety Report 17146427 (Version 3)
Quarter: 2021Q2

REPORT INFORMATION
  Report Type: Spontaneous
  Country: US (occurrence: US)
  Receive Date: 20191212
  Receipt Date: 20210419
  Transmission Date: 20210716
  Serious: Yes (Hospitalization)
  Sender: FDA-Public Use
  Company Number: US-CELGENEUS-USA-20191202370

PATIENT
  Age: 75 Year
  Sex: Male
  Weight: 79.4 kg

DRUGS (48)
  1. VENETOCLAX. [Concomitant]
     Active Substance: VENETOCLAX
     Indication: MYELODYSPLASTIC SYNDROME
     Route: 048
     Dates: start: 20190730, end: 20190823
  2. VENETOCLAX. [Concomitant]
     Active Substance: VENETOCLAX
     Route: 048
     Dates: start: 20190927, end: 20191010
  3. POTASSIUM CHLORIDE. [Concomitant]
     Active Substance: POTASSIUM CHLORIDE
     Dosage: 20 MILLIEQUIVALENTS
     Route: 048
     Dates: start: 20190830, end: 20190831
  4. MAGNESIUM [Concomitant]
     Active Substance: MAGNESIUM
     Indication: SUPPLEMENTATION THERAPY
     Dosage: 120 MILLIGRAM
     Route: 048
     Dates: start: 20190226
  5. VITAMIN C [Concomitant]
     Active Substance: ASCORBIC ACID
     Indication: SUPPLEMENTATION THERAPY
     Dosage: 1000 MILLIGRAM
     Route: 048
     Dates: start: 2018
  6. FUROSEMIDE. [Concomitant]
     Active Substance: FUROSEMIDE
     Indication: OEDEMA
     Dosage: 40 MILLIGRAM
     Route: 041
     Dates: start: 20190830, end: 20190830
  7. OMEPRAZOLE. [Concomitant]
     Active Substance: OMEPRAZOLE
     Indication: GASTROOESOPHAGEAL REFLUX DISEASE
     Dosage: 40 MILLIGRAM
     Route: 048
     Dates: start: 20190907
  8. ISAVUCONAZOLE [Concomitant]
     Active Substance: ISAVUCONAZOLE
     Indication: ANTIFUNGAL PROPHYLAXIS
     Dosage: 1116 MILLIGRAM
     Route: 048
     Dates: start: 20191115, end: 20191116
  9. OXYCODONE AND ACETAMINOPHEN [Concomitant]
     Active Substance: ACETAMINOPHEN\OXYCODONE HYDROCHLORIDE
     Indication: BACK PAIN
  10. LORATADINE. [Concomitant]
     Active Substance: LORATADINE
     Indication: ALLERGY PROPHYLAXIS
     Dosage: 10 MILLIGRAM
     Route: 048
     Dates: start: 20180703
  11. ACYCLOVIR. [Concomitant]
     Active Substance: ACYCLOVIR
     Dosage: 800 MILLIGRAM
     Route: 048
     Dates: start: 20190905, end: 20191127
  12. ACETAMINOPHEN. [Concomitant]
     Active Substance: ACETAMINOPHEN
     Indication: PAIN PROPHYLAXIS
     Dosage: 650 MILLIGRAM
     Route: 065
     Dates: start: 20190830, end: 20190830
  13. FUROSEMIDE. [Concomitant]
     Active Substance: FUROSEMIDE
     Dosage: 20 MILLIGRAM
     Route: 041
     Dates: start: 20190831, end: 20190831
  14. FILGRASTIM [Concomitant]
     Active Substance: FILGRASTIM
     Dosage: 480 MICROGRAM
     Route: 058
     Dates: start: 20191010, end: 20191010
  15. ACETAMINOPHEN. [Concomitant]
     Active Substance: ACETAMINOPHEN
     Dosage: 650 MILLIGRAM
     Route: 048
     Dates: start: 20191126
  16. FILGRASTIM [Concomitant]
     Active Substance: FILGRASTIM
     Dosage: 480 MICROGRAM
     Route: 058
     Dates: start: 20190831
  17. FILGRASTIM [Concomitant]
     Active Substance: FILGRASTIM
     Dosage: 480 MICROGRAM
     Route: 058
     Dates: start: 20190903
  18. FILGRASTIM [Concomitant]
     Active Substance: FILGRASTIM
     Dosage: 480 MICROGRAM
     Route: 058
     Dates: start: 20190930, end: 20190930
  19. METOPROLOL. [Concomitant]
     Active Substance: METOPROLOL
     Indication: HYPERTENSION
     Dosage: 100 MILLIGRAM
     Route: 048
     Dates: start: 20190705
  20. POTASSIUM CHLORIDE. [Concomitant]
     Active Substance: POTASSIUM CHLORIDE
     Indication: SUPPLEMENTATION THERAPY
     Dosage: 20 MILLIEQUIVALENTS
     Route: 048
     Dates: start: 20180821
  21. VITAMIN E [Concomitant]
     Active Substance: .ALPHA.-TOCOPHEROL
     Indication: SUPPLEMENTATION THERAPY
     Dosage: 700 IU (INTERNATIONAL UNIT)
     Route: 048
     Dates: start: 2018
  22. EMLA [Concomitant]
     Active Substance: LIDOCAINE\PRILOCAINE
     Indication: PROPHYLAXIS
     Dosage: 2.5%
     Route: 061
     Dates: start: 20190807
  23. FUROSEMIDE. [Concomitant]
     Active Substance: FUROSEMIDE
     Dosage: 20 MILLIGRAM
     Route: 041
     Dates: start: 20190901, end: 20190902
  24. FUROSEMIDE. [Concomitant]
     Active Substance: FUROSEMIDE
     Dosage: 40 MILLIGRAM
     Route: 048
     Dates: start: 20190903
  25. PROCHLORPERAZINE. [Concomitant]
     Active Substance: PROCHLORPERAZINE
     Dosage: 10 MILLIGRAM
     Route: 048
     Dates: start: 20191115
  26. ONDANSETRON [Concomitant]
     Active Substance: ONDANSETRON
     Indication: NAUSEA
     Route: 041
     Dates: start: 20191127
  27. FILGRASTIM [Concomitant]
     Active Substance: FILGRASTIM
     Dosage: 480 MICROGRAM
     Route: 058
     Dates: start: 20190901
  28. VENETOCLAX. [Concomitant]
     Active Substance: VENETOCLAX
     Route: 048
     Dates: start: 20191031
  29. FLUTICASONE. [Concomitant]
     Active Substance: FLUTICASONE
     Indication: ALLERGY PROPHYLAXIS
     Dosage: 100 MICROGRAM
     Route: 045
     Dates: start: 20190515
  30. HEPARIN [Concomitant]
     Active Substance: HEPARIN SODIUM
     Indication: PROPHYLAXIS
     Dosage: 500 UNITS/5 ML
     Route: 041
     Dates: start: 20190826
  31. ACYCLOVIR. [Concomitant]
     Active Substance: ACYCLOVIR
     Indication: ANTIVIRAL PROPHYLAXIS
     Dosage: 250 MILLIGRAM
     Route: 041
     Dates: start: 20190829, end: 20190830
  32. METOPROLOL TARTRATE. [Concomitant]
     Active Substance: METOPROLOL TARTRATE
     Indication: HYPERTENSION
     Dosage: 25 MILLIGRAM
     Route: 048
     Dates: start: 20180705
  33. ONDANSETRON [Concomitant]
     Active Substance: ONDANSETRON
     Indication: PROPHYLAXIS OF NAUSEA AND VOMITING
  34. FILGRASTIM [Concomitant]
     Active Substance: FILGRASTIM
     Dosage: 480 MICROGRAM
     Route: 058
     Dates: start: 20191003, end: 20191003
  35. FILGRASTIM [Concomitant]
     Active Substance: FILGRASTIM
     Dosage: 480 MICROGRAM
     Route: 058
     Dates: start: 20191102, end: 20191102
  36. VIDAZA [Suspect]
     Active Substance: AZACITIDINE
     Dosage: 75 MILLIGRAM/SQ. METER
     Route: 041
     Dates: start: 20190730
  37. ISAVUCONAZOLE [Concomitant]
     Active Substance: ISAVUCONAZOLE
     Dosage: 372 MILLIGRAM
     Route: 048
     Dates: start: 20191117, end: 20191127
  38. PROCHLORPERAZINE. [Concomitant]
     Active Substance: PROCHLORPERAZINE
     Indication: PROPHYLAXIS OF NAUSEA AND VOMITING
     Dosage: 5 MILLIGRAM
     Route: 048
     Dates: start: 20191115
  39. OXYCODONE AND ACETAMINOPHEN [Concomitant]
     Active Substance: ACETAMINOPHEN\OXYCODONE HYDROCHLORIDE
     Indication: SPINAL COMPRESSION FRACTURE
     Dosage: 5/325 MG
     Route: 048
     Dates: start: 20191123
  40. FILGRASTIM [Concomitant]
     Active Substance: FILGRASTIM
     Dosage: 480 MICROGRAM
     Route: 058
     Dates: start: 20191114, end: 20191114
  41. MULTIVITAMIN [Concomitant]
     Active Substance: VITAMINS
     Indication: SUPPLEMENTATION THERAPY
     Route: 048
     Dates: start: 20190226
  42. POLYETHYLENE [Concomitant]
     Active Substance: HIGH DENSITY POLYETHYLENE
     Indication: CONSTIPATION
     Dosage: 17 GRAM
     Route: 048
     Dates: start: 20191125
  43. FILGRASTIM [Concomitant]
     Active Substance: FILGRASTIM
     Indication: WHITE BLOOD CELL COUNT DECREASED
     Dosage: 480 MICROGRAM
     Route: 058
     Dates: start: 20190830, end: 20190903
  44. VIDAZA [Suspect]
     Active Substance: AZACITIDINE
     Indication: MYELODYSPLASTIC SYNDROME
     Route: 041
     Dates: start: 201812, end: 201907
  45. POTASSIUM CHLORIDE. [Concomitant]
     Active Substance: POTASSIUM CHLORIDE
     Dosage: 60 MILLIEQUIVALENTS
     Route: 048
     Dates: start: 20190830, end: 20190831
  46. ACETAMINOPHEN. [Concomitant]
     Active Substance: ACETAMINOPHEN
     Dosage: 650 MILLIGRAM
     Route: 048
     Dates: start: 20190828, end: 20190828
  47. FILGRASTIM [Concomitant]
     Active Substance: FILGRASTIM
     Dosage: 480 MICROGRAM
     Route: 058
     Dates: start: 20190902
  48. FILGRASTIM [Concomitant]
     Active Substance: FILGRASTIM
     Dosage: 480 MICROGRAM
     Route: 058
     Dates: start: 20191105, end: 20191105

REACTIONS (2)
  - Small intestinal obstruction [Recovered/Resolved]
  - Febrile neutropenia [Recovered/Resolved]

NARRATIVE: CASE EVENT DATE: 20191127
